FAERS Safety Report 6225135-2 (Version None)
Quarter: 2009Q2

REPORT INFORMATION
  Report Type: 
  Country: None (occurrence: None)
  Receive Date: 20090612
  Receipt Date: 20090407
  Transmission Date: 20091009
  Serious: Yes (Hospitalization)
  Sender: FDA-Public Use
  Company Number: US-ABBOTT-09P-163-0566950-00

PATIENT
  Sex: Female
  Weight: 118.04 kg

DRUGS (8)
  1. HUMIRA [Suspect]
     Indication: RHEUMATOID ARTHRITIS
     Route: 058
     Dates: start: 20060401, end: 20061101
  2. HUMIRA [Suspect]
     Indication: PSORIASIS
     Route: 058
     Dates: start: 20080901, end: 20090331
  3. METHOTREXATE [Concomitant]
     Indication: RHEUMATOID ARTHRITIS
     Route: 048
  4. PREDNISONE [Concomitant]
     Indication: RHEUMATOID ARTHRITIS
     Route: 048
  5. HYDROCHLOROQUINE [Concomitant]
     Indication: RHEUMATOID ARTHRITIS
     Route: 048
  6. FOLIC ACID [Concomitant]
     Indication: MEDICAL DIET
     Route: 048
  7. AMBIEN [Concomitant]
     Indication: INSOMNIA
     Route: 048
  8. TRAVATAN [Concomitant]
     Indication: GLAUCOMA
     Dosage: 1 GTT IN EACH EYE DAILY
     Route: 047

REACTIONS (3)
  - CELLULITIS [None]
  - DRUG INEFFECTIVE [None]
  - PSORIASIS [None]
